FAERS Safety Report 6410481-X (Version None)
Quarter: 2009Q4

REPORT INFORMATION
  Report Type: 
  Country: None (occurrence: None)
  Receive Date: 20091022
  Receipt Date: 20091015
  Transmission Date: 20100525
  Serious: Yes (Other)
  Sender: FDA-Public Use
  Company Number: ES-MERCK-0910ESP00014

PATIENT
  Age: 83 Year
  Sex: Male

DRUGS (8)
  1. JANUMET [Suspect]
     Indication: TYPE 2 DIABETES MELLITUS
     Route: 048
     Dates: start: 20090801, end: 20090911
  2. METFORMIN HYDROCHLORIDE [Suspect]
     Indication: TYPE 2 DIABETES MELLITUS
     Route: 048
     Dates: start: 20090801, end: 20090820
  3. OMEPRAZOLE [Concomitant]
     Route: 048
     Dates: start: 20090610
  4. ESCITALOPRAM OXALATE [Concomitant]
     Route: 065
     Dates: start: 20080807
  5. SOLIFENACIN SUCCINATE [Concomitant]
     Route: 065
     Dates: start: 20090610
  6. GALANTAMINE HYDROBROMIDE [Concomitant]
     Route: 065
     Dates: start: 20081127
  7. FENOFIBRATE [Concomitant]
     Route: 065
     Dates: start: 20090723
  8. LORAZEPAM [Concomitant]
     Route: 065
     Dates: start: 20080824

REACTIONS (5)
  - ASTHENIA [None]
  - CACHEXIA [None]
  - DECREASED APPETITE [None]
  - NAUSEA [None]
  - WEIGHT DECREASED [None]
